FAERS Safety Report 13974533 (Version 2)
Quarter: 2018Q4

REPORT INFORMATION
  Report Type: Report from Study
  Country: US (occurrence: US)
  Receive Date: 20170914
  Receipt Date: 20181026
  Transmission Date: 20190204
  Serious: Yes (Hospitalization, Other)
  Sender: FDA-Public Use
  Company Number: US-ASTELLAS-2017US031737

PATIENT
  Age: 71 Year
  Sex: Male

DRUGS (2)
  1. BRILINTA [Interacting]
     Active Substance: TICAGRELOR
     Indication: PRODUCT USED FOR UNKNOWN INDICATION
     Dosage: UNK, UNKNOWN FREQ.
     Route: 048
  2. ENZALUTAMIDE [Suspect]
     Active Substance: ENZALUTAMIDE
     Indication: PROSTATE CANCER
     Route: 048
     Dates: start: 20170125

REACTIONS (11)
  - Epistaxis [Unknown]
  - Dysgeusia [Unknown]
  - Product physical issue [Unknown]
  - Vomiting [Unknown]
  - Coeliac disease [Unknown]
  - Circumstance or information capable of leading to medication error [Unknown]
  - Nasal dryness [Unknown]
  - Drug interaction [Unknown]
  - Decreased appetite [Unknown]
  - Blood potassium increased [Unknown]
  - Nausea [Unknown]

NARRATIVE: CASE EVENT DATE: 20170725
